FAERS Safety Report 17041322 (Version 1)
Quarter: 2019Q4

REPORT INFORMATION
  Report Type: Spontaneous
  Country: US (occurrence: US)
  Receive Date: 20191118
  Receipt Date: 20191118
  Transmission Date: 20200122
  Serious: Yes (Hospitalization, Other)
  Sender: FDA-Public Use
  Company Number: US-CIPLA LTD.-2019US07527

PATIENT

DRUGS (3)
  1. WARFARIN [Suspect]
     Active Substance: WARFARIN
     Indication: ANTICOAGULANT THERAPY
     Dosage: UNK
     Route: 065
  2. TRAMADOL. [Interacting]
     Active Substance: TRAMADOL
     Indication: NEURALGIA
     Dosage: UNK
     Route: 065
  3. GABAPENTINE [Concomitant]
     Active Substance: GABAPENTIN
     Indication: NEURALGIA
     Dosage: UNK
     Route: 065

REACTIONS (3)
  - Anticoagulation drug level above therapeutic [Recovered/Resolved]
  - Rectal haemorrhage [Unknown]
  - Drug interaction [Unknown]
